FAERS Safety Report 4558829-5 (Version None)
Quarter: 2005Q1

REPORT INFORMATION
  Report Type: 
  Country: None (occurrence: None)
  Receive Date: 20050121
  Receipt Date: 20050119
  Transmission Date: 20050727
  Serious: Yes (Hospitalization)
  Sender: FDA-Public Use
  Company Number: FR-GLAXOSMITHKLINE-B0364987A

PATIENT
  Age: 4 Day
  Sex: Male

DRUGS (5)
  1. RETROVIR [Suspect]
     Indication: ANTIVIRAL PROPHYLAXIS
     Dosage: .7MG TWICE PER DAY
     Route: 042
     Dates: start: 20040819, end: 20040823
  2. COMBIVIR [Suspect]
     Indication: HIV INFECTION
     Dates: start: 20040810, end: 20040819
  3. VIRAMUNE [Concomitant]
     Dosage: 1MG PER DAY
     Route: 048
     Dates: start: 20040821, end: 20040821
  4. VIRACEPT [Concomitant]
     Indication: HIV INFECTION
     Dates: start: 20040810, end: 20040819
  5. PHOTOTHERAPY [Concomitant]

REACTIONS (8)
  - ANAEMIA MACROCYTIC [None]
  - ANGIOPATHY [None]
  - APGAR SCORE LOW [None]
  - DRUG EXPOSURE DURING PREGNANCY [None]
  - DRUG LEVEL INCREASED [None]
  - LACTIC ACIDOSIS [None]
  - NEONATAL DISORDER [None]
  - PREMATURE BABY [None]
